FAERS Safety Report 9169061 (Version 1)
Quarter: 2013Q1

REPORT INFORMATION
  Report Type: Spontaneous
  Country: US (occurrence: None)
  Receive Date: 20130314
  Receipt Date: 20130314
  Transmission Date: 20140127
  Serious: Yes (Other)
  Sender: FDA-Public Use
  Company Number: None

PATIENT
  Age: 59 Year
  Sex: Male
  Weight: 77.11 kg

DRUGS (1)
  1. NAPROXEN [Suspect]
     Dosage: 500MG BID PO
     Route: 048
     Dates: start: 20130101, end: 20130121

REACTIONS (2)
  - Drug ineffective [None]
  - Product substitution issue [None]
